FAERS Safety Report 24172388 (Version 3)
Quarter: 2024Q3

REPORT INFORMATION
  Report Type: Spontaneous
  Country: US (occurrence: None)
  Receive Date: 20240805
  Receipt Date: 20240918
  Transmission Date: 20241017
  Serious: No
  Sender: ASTRAZENECA
  Company Number: 2024A170730

PATIENT
  Sex: Female

DRUGS (2)
  1. CALQUENCE [Suspect]
     Active Substance: ACALABRUTINIB
     Route: 048
  2. CALQUENCE [Suspect]
     Active Substance: ACALABRUTINIB
     Route: 048

REACTIONS (6)
  - Productive cough [Unknown]
  - Cough [Unknown]
  - Headache [Unknown]
  - Contusion [Unknown]
  - Diarrhoea [Recovered/Resolved]
  - COVID-19 [Unknown]
